FAERS Safety Report 10273752 (Version 4)
Quarter: 2014Q3

REPORT INFORMATION
  Report Type: Report from Study
  Country: AU (occurrence: AU)
  Receive Date: 20140702
  Receipt Date: 20140710
  Transmission Date: 20150326
  Serious: Yes (Other)
  Sender: FDA-Public Use
  Company Number: PHHY2014AU019273

PATIENT
  Age: 28 Year
  Sex: Male

DRUGS (1)
  1. CLOZARIL [Suspect]
     Active Substance: CLOZAPINE
     Dosage: 200 MG
     Dates: start: 201401, end: 201401

REACTIONS (17)
  - Troponin increased [Recovered/Resolved]
  - Ventricular extrasystoles [Unknown]
  - Psychiatric symptom [Unknown]
  - Viral infection [Unknown]
  - Panic attack [Unknown]
  - Sinus tachycardia [Unknown]
  - Myocarditis [Unknown]
  - Tricuspid valve incompetence [Unknown]
  - Blood alkaline phosphatase decreased [Unknown]
  - Sleep apnoea syndrome [Unknown]
  - Mitral valve incompetence [Unknown]
  - Atrial fibrillation [Unknown]
  - C-reactive protein increased [Unknown]
  - Supraventricular extrasystoles [Unknown]
  - Alanine aminotransferase increased [Unknown]
  - Blood creatine phosphokinase increased [Unknown]
  - Pyrexia [Unknown]

NARRATIVE: CASE EVENT DATE: 20140107
